FAERS Safety Report 9656220 (Version 1)
Quarter: 2013Q4

REPORT INFORMATION
  Report Type: Spontaneous
  Country: US (occurrence: US)
  Receive Date: 20131030
  Receipt Date: 20131030
  Transmission Date: 20140711
  Serious: No
  Sender: FDA-Public Use
  Company Number: US-PFIZER INC-2013304894

PATIENT
  Age: 63 Year
  Sex: Female

DRUGS (3)
  1. AZULFIDINE [Suspect]
     Dosage: UNK
  2. METHOTREXATE SODIUM [Suspect]
     Dosage: UNK
  3. PLAQUENIL [Suspect]
     Dosage: UNK

REACTIONS (1)
  - Drug ineffective [Unknown]
